FAERS Safety Report 9510566 (Version 1)
Quarter: 2013Q3

REPORT INFORMATION
  Report Type: Spontaneous
  Country: BR (occurrence: BR)
  Receive Date: 20130909
  Receipt Date: 20130909
  Transmission Date: 20140515
  Serious: Yes (Other)
  Sender: FDA-Public Use
  Company Number: CHPA2013BR013862

PATIENT
  Age: 29 Year
  Sex: Male

DRUGS (1)
  1. LAMISILATE [Suspect]
     Indication: FUNGAL INFECTION
     Dosage: UNK, QD
     Route: 061
     Dates: start: 20130902

REACTIONS (2)
  - Application site erythema [Not Recovered/Not Resolved]
  - Application site pruritus [Not Recovered/Not Resolved]
